FAERS Safety Report 17813376 (Version 2)
Quarter: 2021Q4

REPORT INFORMATION
  Report Type: Spontaneous
  Country: FR (occurrence: FR)
  Receive Date: 20200521
  Receipt Date: 20211213
  Transmission Date: 20220304
  Serious: Yes (Congenital Anomaly, Other)
  Sender: FDA-Public Use
  Company Number: FR-ABBVIE-17P-056-2121158-00

PATIENT
  Sex: Male

DRUGS (3)
  1. VALPROATE SODIUM [Suspect]
     Active Substance: VALPROATE SODIUM
     Indication: Maternal exposure timing unspecified
     Route: 064
  2. LAMICTAL [Suspect]
     Active Substance: LAMOTRIGINE
     Indication: Maternal exposure timing unspecified
     Route: 064
  3. FOLIC ACID [Concomitant]
     Active Substance: FOLIC ACID
     Indication: Maternal exposure timing unspecified

REACTIONS (34)
  - Foot deformity [Unknown]
  - Visuospatial deficit [Unknown]
  - Psychomotor skills impaired [Unknown]
  - Emotional disorder [Unknown]
  - Dysmorphism [Unknown]
  - Muscle tone disorder [Unknown]
  - Speech disorder developmental [Unknown]
  - Dysgraphia [Unknown]
  - Hypotonia [Unknown]
  - Language disorder [Unknown]
  - Behaviour disorder [Unknown]
  - Congenital umbilical hernia [Unknown]
  - Speech disorder developmental [Unknown]
  - Sleep disorder [Unknown]
  - Hypermobility syndrome [Unknown]
  - Ear disorder [Unknown]
  - Nasal disorder [Unknown]
  - Pharyngeal disorder [Unknown]
  - Joint laxity [Unknown]
  - Hypoacusis [Unknown]
  - Fatigue [Unknown]
  - Attention deficit hyperactivity disorder [Not Recovered/Not Resolved]
  - Disturbance in attention [Unknown]
  - Learning disorder [Unknown]
  - Hypospadias [Unknown]
  - Anxiety [Unknown]
  - Knee deformity [Unknown]
  - Learning disability [Unknown]
  - Kidney malformation [Unknown]
  - Tooth malformation [Unknown]
  - Dyslexia [Unknown]
  - Memory impairment [Unknown]
  - Visual impairment [Unknown]
  - Foetal exposure during pregnancy [Unknown]

NARRATIVE: CASE EVENT DATE: 20160101
